FAERS Safety Report 5460342-8 (Version None)
Quarter: 2007Q3

REPORT INFORMATION
  Report Type: 
  Country: None (occurrence: None)
  Receive Date: 20070919
  Receipt Date: 20070622
  Transmission Date: 20080115
  Serious: Yes (Life-Threatening, Other)
  Sender: FDA-Public Use
  Company Number: US-ASTRAZENECA-2007UW15086

PATIENT
  Sex: Female
  Weight: 68.2 kg

DRUGS (2)
  1. SEROQUEL [Suspect]
     Dosage: REDUCTION OF 50% OF MEDICINE AND PLANNING TO CHANGE
     Route: 048
  2. LEXAPRO [Concomitant]

REACTIONS (1)
  - SYNCOPE [None]
